FAERS Safety Report 17815619 (Version 1)
Quarter: 2020Q2

REPORT INFORMATION
  Report Type: Spontaneous
  Country: US (occurrence: US)
  Receive Date: 20200521
  Receipt Date: 20200521
  Transmission Date: 20200714
  Serious: Yes (Disabling, Other)
  Sender: FDA-Public Use
  Company Number: None

PATIENT
  Age: 32 Year
  Sex: Female
  Weight: 81.65 kg

DRUGS (4)
  1. TRUE CURE PROBIOTIC AND URINARY HEALTH [Concomitant]
  2. PARAGARD T 380A [Suspect]
     Active Substance: COPPER
  3. ONE A DAY WOMEN^S MULTIVITAMIN [Concomitant]
  4. NZTURE^S BEST APPLE CIDER VINEGAR CAPS [Concomitant]

REACTIONS (12)
  - Fatigue [None]
  - Headache [None]
  - Feeling abnormal [None]
  - Alopecia [None]
  - Menstrual disorder [None]
  - Abdominal distension [None]
  - Complication associated with device [None]
  - Lethargy [None]
  - Vaginal odour [None]
  - General physical health deterioration [None]
  - Dyspnoea [None]
  - Chest discomfort [None]

NARRATIVE: CASE EVENT DATE: 20141020
